FAERS Safety Report 23132483 (Version 1)
Quarter: 2023Q4

REPORT INFORMATION
  Report Type: Spontaneous
  Country: US (occurrence: US)
  Receive Date: 20231101
  Receipt Date: 20231101
  Transmission Date: 20240109
  Serious: Yes (Other)
  Sender: FDA-Public Use
  Company Number: US-SA-SAC20231030002533

PATIENT
  Sex: Male

DRUGS (1)
  1. RIFAMPIN [Suspect]
     Active Substance: RIFAMPIN
     Dosage: UNK

REACTIONS (3)
  - Atypical mycobacterial infection [Unknown]
  - Mycobacterium haemophilum infection [Unknown]
  - Abdominal discomfort [Unknown]
